FAERS Safety Report 5849412-X (Version None)
Quarter: 2008Q3

REPORT INFORMATION
  Report Type: 
  Country: None (occurrence: None)
  Receive Date: 20080815
  Receipt Date: 20080811
  Transmission Date: 20090109
  Serious: Yes (Hospitalization)
  Sender: FDA-Public Use
  Company Number: 2008SP016329

PATIENT
  Age: 44 Year
  Sex: Male
  Weight: 90.7194 kg

DRUGS (3)
  1. PEG-INTRON [Suspect]
     Indication: HEPATITIS C
     Dosage: SC
     Route: 058
     Dates: start: 20080208, end: 20080801
  2. RIBAVIRIN [Suspect]
     Indication: HEPATITIS C
     Dosage: PO
     Route: 048
     Dates: end: 20080801
  3. RIBAVIRIN [Suspect]
     Indication: HEPATITIS C
     Dosage: PO
     Route: 048
     Dates: start: 20080208

REACTIONS (14)
  - ALOPECIA [None]
  - ANAEMIA [None]
  - ANXIETY [None]
  - ASTHENIA [None]
  - BLOOD SODIUM DECREASED [None]
  - BRADYPHRENIA [None]
  - CONFUSIONAL STATE [None]
  - DYSGEUSIA [None]
  - ELECTROLYTE IMBALANCE [None]
  - GASTROENTERITIS VIRAL [None]
  - HYPOPHAGIA [None]
  - INCOHERENT [None]
  - VOMITING [None]
  - WEIGHT DECREASED [None]
